FAERS Safety Report 17773411 (Version 1)
Quarter: 2020Q2

REPORT INFORMATION
  Report Type: Spontaneous
  Country: GB (occurrence: GB)
  Receive Date: 20200512
  Receipt Date: 20200512
  Transmission Date: 20200714
  Serious: Yes (Hospitalization, Other)
  Sender: FDA-Public Use
  Company Number: NVSC2020GB128753

PATIENT
  Age: 71 Year
  Sex: Male

DRUGS (2)
  1. DOCETAXEL. [Suspect]
     Active Substance: DOCETAXEL
     Indication: PROSTATE CANCER
     Dosage: 132 MG (APPROX. EVERY 6/52 WEEKS)
     Route: 042
     Dates: start: 20170511, end: 20170511
  2. DOCETAXEL. [Suspect]
     Active Substance: DOCETAXEL
     Dosage: 132 MG (APPROX. EVERY 6/52 WEEKS)
     Route: 042
     Dates: start: 20170810, end: 20170810

REACTIONS (4)
  - Pulmonary embolism [Recovering/Resolving]
  - Dyspnoea [Recovering/Resolving]
  - Toxicity to various agents [Recovering/Resolving]
  - Chest pain [Recovering/Resolving]

NARRATIVE: CASE EVENT DATE: 20170810
